FAERS Safety Report 4657723-9 (Version None)
Quarter: 2005Q2

REPORT INFORMATION
  Report Type: 
  Country: None (occurrence: None)
  Receive Date: 20050510
  Receipt Date: 20041207
  Transmission Date: 20051028
  Serious: Yes (Death, Hospitalization, Other)
  Sender: FDA-Public Use
  Company Number: FR-AMGEN-UK102014

PATIENT
  Sex: Female

DRUGS (1)
  1. NEUPOGEN [Suspect]
     Indication: PERIPHERAL BLOOD STEM CELL APHERESIS
     Route: 058
     Dates: start: 20030713, end: 20030717

REACTIONS (4)
  - ACUTE LYMPHOCYTIC LEUKAEMIA [None]
  - AUTOSOMAL CHROMOSOME ANOMALY [None]
  - DEATH [None]
  - LYMPHOMA [None]
